FAERS Safety Report 9406244 (Version 1)
Quarter: 2013Q3

REPORT INFORMATION
  Report Type: Spontaneous
  Country: US (occurrence: US)
  Receive Date: 20130717
  Receipt Date: 20130717
  Transmission Date: 20140515
  Serious: No
  Sender: FDA-Public Use
  Company Number: US-BAUSCH-BL-2013-000224

PATIENT
  Age: 43 Year
  Sex: Female

DRUGS (5)
  1. BESIVANCE (BESIFLOXACIN OPHTHALMIC SUSPENSION) 0.6% [Suspect]
     Indication: OFF LABEL USE
     Dosage: 1 DROP IN EACH EYE, THREE TIMES PER DAY
     Route: 047
     Dates: start: 20130110, end: 20130112
  2. BESIVANCE (BESIFLOXACIN OPHTHALMIC SUSPENSION) 0.6% [Suspect]
     Indication: POSTOPERATIVE CARE
  3. LOTEMAX (LOTEPREDNOL ETABONATE OPHTHALMIC SUSPENSION 0.5%) [Suspect]
     Indication: OFF LABEL USE
     Dosage: 1 DROP IN EACH EYE, THREE TIMES PER DAY
     Route: 047
     Dates: start: 20130110, end: 20130112
  4. LOTEMAX (LOTEPREDNOL ETABONATE OPHTHALMIC SUSPENSION 0.5%) [Suspect]
     Indication: POSTOPERATIVE CARE
  5. CARMELLOSE [Concomitant]

REACTIONS (2)
  - Local swelling [Not Recovered/Not Resolved]
  - Eyelid oedema [Not Recovered/Not Resolved]
